FAERS Safety Report 9699295 (Version 3)
Quarter: 2015Q3

REPORT INFORMATION
  Report Type: Spontaneous
  Country: US (occurrence: US)
  Receive Date: 20131120
  Receipt Date: 20150803
  Transmission Date: 20151125
  Serious: Yes (Hospitalization)
  Sender: FDA-Public Use
  Company Number: US-GILEAD-2008-0015163

PATIENT
  Age: 80 Year
  Sex: Male

DRUGS (16)
  1. LETAIRIS [Suspect]
     Active Substance: AMBRISENTAN
     Indication: PULMONARY ARTERIAL HYPERTENSION
     Route: 048
     Dates: start: 20080107
  2. DIGOXIN. [Concomitant]
     Active Substance: DIGOXIN
  3. METOLAZONE. [Concomitant]
     Active Substance: METOLAZONE
  4. WARFARIN [Concomitant]
     Active Substance: WARFARIN
  5. GLIPIZIDE. [Concomitant]
     Active Substance: GLIPIZIDE
  6. PROSCAR [Concomitant]
     Active Substance: FINASTERIDE
  7. DETROL [Concomitant]
     Active Substance: TOLTERODINE TARTRATE
  8. ASA [Concomitant]
     Active Substance: ASPIRIN
  9. SIMVASTATIN. [Concomitant]
     Active Substance: SIMVASTATIN
  10. ISOSORBIDE. [Concomitant]
     Active Substance: ISOSORBIDE
  11. SYNTHROID [Concomitant]
     Active Substance: LEVOTHYROXINE SODIUM
  12. DEMADEX [Concomitant]
     Active Substance: TORSEMIDE
  13. ENALAPRIL [Concomitant]
     Active Substance: ENALAPRIL
  14. ATENOLOL. [Concomitant]
     Active Substance: ATENOLOL
  15. PLAVIX [Concomitant]
     Active Substance: CLOPIDOGREL BISULFATE
  16. FLUOXETINE [Concomitant]
     Active Substance: FLUOXETINE\FLUOXETINE HYDROCHLORIDE

REACTIONS (1)
  - Red blood cell count decreased [Unknown]

NARRATIVE: CASE EVENT DATE: 20080110
